FAERS Safety Report 6671448-X (Version None)
Quarter: 2010Q2

REPORT INFORMATION
  Report Type: 
  Country: None (occurrence: None)
  Receive Date: 20100406
  Receipt Date: 20100406
  Transmission Date: 20101027
  Serious: Yes (Death, Life-Threatening, Hospitalization, Disabling, Other)
  Sender: FDA-Public Use
  Company Number: None

PATIENT
  Sex: Male
  Weight: 72.5755 kg

DRUGS (2)
  1. PACERONE [Suspect]
     Indication: VENTRICULAR TACHYCARDIA
     Dosage: 200 MG 1 X DAILY ORAL
     Route: 048
     Dates: start: 20040801
  2. PACERONE [Suspect]
     Indication: VENTRICULAR TACHYCARDIA
     Dosage: 200 MG 1 X DAILY ORAL
     Route: 048
     Dates: start: 20090101

REACTIONS (2)
  - DRUG TOXICITY [None]
  - PULMONARY FIBROSIS [None]
